FAERS Safety Report 4643016-2 (Version None)
Quarter: 2005Q2

REPORT INFORMATION
  Report Type: 
  Country: None (occurrence: None)
  Receive Date: 20050421
  Receipt Date: 20050408
  Transmission Date: 20051028
  Serious: No
  Sender: FDA-Public Use
  Company Number: 2005AP02071

PATIENT
  Age: 64 Year
  Sex: Female

DRUGS (5)
  1. OMEPRAL [Suspect]
     Indication: REFLUX OESOPHAGITIS
     Dosage: 20 MG DAILY PO
     Route: 048
     Dates: start: 20050215, end: 20050304
  2. CEREGASRON [Concomitant]
  3. GASMOTIN [Concomitant]
  4. GATIFLO [Concomitant]
  5. SYLLABLE [Concomitant]

REACTIONS (6)
  - CYSTITIS [None]
  - LYMPHADENOPATHY [None]
  - PAIN [None]
  - RED BLOOD CELLS URINE POSITIVE [None]
  - RENAL DISORDER [None]
  - RENAL FAILURE ACUTE [None]
